FAERS Safety Report 5723694-7 (Version None)
Quarter: 2008Q2

REPORT INFORMATION
  Report Type: 
  Country: None (occurrence: None)
  Receive Date: 20080430
  Receipt Date: 20080424
  Transmission Date: 20081010
  Serious: Yes (Hospitalization)
  Sender: FDA-Public Use
  Company Number: JP-ASTRAZENECA-2008AP02176

PATIENT
  Age: 25318 Day
  Sex: Male
  Weight: 55 kg

DRUGS (10)
  1. IRESSA [Suspect]
     Indication: NON-SMALL CELL LUNG CANCER
     Route: 048
     Dates: start: 20080303, end: 20080316
  2. BASEN [Concomitant]
     Indication: TYPE 2 DIABETES MELLITUS
     Route: 048
     Dates: start: 20070101
  3. GASTER D [Concomitant]
     Indication: GASTRIC ULCER
     Route: 048
     Dates: start: 20070101
  4. EUGLUCON [Concomitant]
     Indication: GASTRIC ULCER
     Route: 048
     Dates: start: 20070101
  5. ADALAT [Concomitant]
     Indication: HYPERTENSION
     Route: 048
     Dates: start: 20070101
  6. SALOBEL [Concomitant]
     Indication: HYPERURICAEMIA
     Route: 048
     Dates: start: 20070101
  7. TENORMIN [Concomitant]
     Indication: HYPERTENSION
     Route: 048
     Dates: start: 20070101
  8. WARFARIN SODIUM [Concomitant]
     Indication: ATRIAL FIBRILLATION
     Route: 048
     Dates: start: 20070101
  9. LASIX [Concomitant]
     Indication: CARDIAC FAILURE CHRONIC
     Route: 048
     Dates: start: 20070101
  10. ZYRTEC [Concomitant]
     Indication: URTICARIA
     Route: 048
     Dates: start: 20070101

REACTIONS (1)
  - RENAL FAILURE [None]
